FAERS Safety Report 21247276 (Version 1)
Quarter: 2022Q3

REPORT INFORMATION
  Report Type: Spontaneous
  Country: GB (occurrence: GB)
  Receive Date: 20220824
  Receipt Date: 20220824
  Transmission Date: 20221027
  Serious: Yes (Hospitalization, Other)
  Sender: FDA-Public Use
  Company Number: GB-MLMSERVICE-2022081037272691

PATIENT
  Age: 66 Year
  Sex: Female

DRUGS (1)
  1. PACLITAXEL [Suspect]
     Active Substance: PACLITAXEL
     Indication: Breast cancer metastatic

REACTIONS (5)
  - Nerve compression [Unknown]
  - Dehydration [Unknown]
  - Gastroenteritis [Unknown]
  - Facial paralysis [Unknown]
  - Bacterial parotitis [Unknown]
